FAERS Safety Report 9282785 (Version 1)
Quarter: 2013Q2

REPORT INFORMATION
  Report Type: Report from Study
  Country: BR (occurrence: BR)
  Receive Date: 20130510
  Receipt Date: 20130510
  Transmission Date: 20140414
  Serious: Yes (Other)
  Sender: FDA-Public Use
  Company Number: PHHY2013BR046094

PATIENT
  Sex: Female
  Weight: 56 kg

DRUGS (6)
  1. ACLASTA [Suspect]
     Indication: OSTEOPOROSIS
     Dosage: 5 MG, UNK
     Route: 042
     Dates: start: 2012
  2. CONCARDIO [Concomitant]
     Dosage: UNK UKN, UNK
  3. ROSUVASTATIN [Concomitant]
     Dosage: UNK UKN, UNK
  4. CLOPIDOGREL BISULFATE [Concomitant]
     Dosage: UNK UKN, UNK
  5. ARTROLIVE [Concomitant]
     Dosage: UNK UKN, UNK
  6. OSCAL D                            /00944201/ [Concomitant]
     Dosage: UNK UKN, UNK

REACTIONS (1)
  - Infarction [Recovering/Resolving]
